FAERS Safety Report 4371452-0 (Version None)
Quarter: 2004Q2

REPORT INFORMATION
  Report Type: 
  Country: None (occurrence: None)
  Receive Date: 20040601
  Receipt Date: 20040517
  Transmission Date: 20050107
  Serious: Yes (Other)
  Sender: FDA-Public Use
  Company Number: 206576

PATIENT
  Age: 62 Year
  Sex: Male
  Weight: 85.7 kg

DRUGS (4)
  1. AVASTIN [Suspect]
     Indication: COLON CANCER
     Dosage: 400 MG, Q2W, INTRAVENOUS
     Route: 042
     Dates: start: 20040405
  2. IRINOTECAN (IRINOTECAN HYDROCHLORIDE) [Suspect]
     Indication: COLON CANCER
     Dosage: 250 MG, 1/WEEK,  INTRAVENOUS
     Route: 042
     Dates: start: 20040405
  3. FLUOROURACIL [Suspect]
     Indication: COLON CANCER
     Dosage: 1000 MG, 1/WEEK, INTRAVENOUS
     Route: 042
     Dates: start: 20040405
  4. LEUCOVORIN CALCIUM [Suspect]
     Indication: COLON CANCER
     Dosage: 40 MG, Q2W, INTRAVENOUS
     Route: 042
     Dates: start: 20040405

REACTIONS (2)
  - NEUTROPENIA [None]
  - THROMBOCYTOPENIA [None]
